FAERS Safety Report 19515261 (Version 4)
Quarter: 2022Q2

REPORT INFORMATION
  Report Type: Spontaneous
  Country: IN (occurrence: IN)
  Receive Date: 20210709
  Receipt Date: 20220602
  Transmission Date: 20220720
  Serious: Yes (Other)
  Sender: FDA-Public Use
  Company Number: IN-PFIZER INC-2018534020

PATIENT
  Age: 21 Year
  Sex: Male

DRUGS (4)
  1. SUTENT [Suspect]
     Active Substance: SUNITINIB MALATE
     Indication: Metastatic renal cell carcinoma
     Dosage: 50 MG, CYCLIC (ONCE A DAY, TWO WEEKS ON AND ONE WEEK OFF/7 DAYS ON AND 7 DAYS OFF)
     Route: 048
     Dates: start: 20121222
  2. SUTENT [Suspect]
     Active Substance: SUNITINIB MALATE
     Dosage: 50 MG, CYCLIC (ONCE A DAY, TWO WEEKS ON AND ONE WEEK OFF)
     Route: 048
     Dates: start: 20181222
  3. SUTENT [Suspect]
     Active Substance: SUNITINIB MALATE
     Dosage: 50 MG, CYCLIC (ONCE A DAY, X 3 WEEKS, 2 WEEKS ON 1 WEEK OFF) * 3 MONTHS
     Route: 048
     Dates: start: 20201228
  4. SUTENT [Suspect]
     Active Substance: SUNITINIB MALATE
     Dosage: 50 MG, 1X/DAY X 3 MONTHS (2 WEEKS ON/ 1 WEEK OFF)

REACTIONS (2)
  - Second primary malignancy [Unknown]
  - Chordoma [Unknown]
